FAERS Safety Report 18222465 (Version 1)
Quarter: 2020Q3

REPORT INFORMATION
  Report Type: Report from Study
  Country: MX (occurrence: MX)
  Receive Date: 20200902
  Receipt Date: 20200902
  Transmission Date: 20201103
  Serious: Yes (Hospitalization, Other)
  Sender: FDA-Public Use
  Company Number: MX-BRISTOL-MYERS SQUIBB COMPANY-BMS-2020-070792

PATIENT
  Age: 53 Year
  Sex: Male

DRUGS (2)
  1. RADIOTHERAPY [Concomitant]
     Active Substance: RADIATION THERAPY
     Indication: PRODUCT USED FOR UNKNOWN INDICATION
     Dosage: UNK
     Route: 065
  2. NIVOLUMAB [Suspect]
     Active Substance: NIVOLUMAB
     Indication: MALIGNANT MELANOMA
     Dosage: FREQUENCY?FORTNIGHTLY
     Route: 065
     Dates: start: 20180124

REACTIONS (1)
  - Noninfective encephalitis [Recovering/Resolving]

NARRATIVE: CASE EVENT DATE: 20200817
